FAERS Safety Report 7816050-9 (Version None)
Quarter: 2011Q4

REPORT INFORMATION
  Report Type: 
  Country: None (occurrence: None)
  Receive Date: 20111015
  Receipt Date: 20111005
  Transmission Date: 20120403
  Serious: Yes (Hospitalization)
  Sender: FDA-Public Use
  Company Number: JP-ASTRAZENECA-2011SE60352

PATIENT
  Age: 64 Year
  Sex: Female

DRUGS (2)
  1. ARIMIDEX [Suspect]
     Indication: BREAST CANCER
     Route: 048
  2. SYNTHETIC VITAMIN D AND PREPARATIONS [Concomitant]
     Dosage: DOSE UNKNOWN
     Route: 048

REACTIONS (3)
  - MALAISE [None]
  - MUSCULOSKELETAL STIFFNESS [None]
  - OSTEONECROSIS [None]
